FAERS Safety Report 5051937-4 (Version None)
Quarter: 2006Q3

REPORT INFORMATION
  Report Type: 
  Country: None (occurrence: None)
  Receive Date: 20060711
  Receipt Date: 20060620
  Transmission Date: 20061208
  Serious: Yes (Hospitalization)
  Sender: FDA-Public Use
  Company Number: US200606004672

PATIENT
  Sex: Female

DRUGS (7)
  1. HUMULIN N [Suspect]
     Indication: DIABETES MELLITUS
  2. HUMALOG [Suspect]
     Indication: DIABETES MELLITUS
  3. PLAVIX [Concomitant]
  4. LISINOPRIL [Concomitant]
  5. METOPROLOL (METOPROLOL) [Concomitant]
  6. ASPIRIN TAB [Concomitant]
  7. GLUCOPHAGE [Concomitant]

REACTIONS (3)
  - BLOOD GLUCOSE INCREASED [None]
  - RENAL DISORDER [None]
  - RENAL FAILURE [None]
